FAERS Safety Report 19232099 (Version 1)
Quarter: 2021Q2

REPORT INFORMATION
  Report Type: Spontaneous
  Country: US (occurrence: US)
  Receive Date: 20210507
  Receipt Date: 20210507
  Transmission Date: 20210717
  Serious: Yes (Other)
  Sender: FDA-Public Use
  Company Number: US-HIKMA PHARMACEUTICALS USA INC.-US-H14001-21-02187

PATIENT
  Age: 65 Year
  Sex: Male

DRUGS (6)
  1. METHYLPREDNISOLONE. [Suspect]
     Active Substance: METHYLPREDNISOLONE
  2. PREDNISONE. [Suspect]
     Active Substance: PREDNISONE
     Indication: TUBULOINTERSTITIAL NEPHRITIS
     Route: 048
  3. MYCOPHENOLATE MOFETIL. [Concomitant]
     Active Substance: MYCOPHENOLATE MOFETIL
     Indication: TUBULOINTERSTITIAL NEPHRITIS
     Route: 065
  4. FUROSEMIDE. [Concomitant]
     Active Substance: FUROSEMIDE
     Indication: PRODUCT USED FOR UNKNOWN INDICATION
     Dosage: UNKNOWN
     Route: 065
  5. METHYLPREDNISOLONE. [Suspect]
     Active Substance: METHYLPREDNISOLONE
     Indication: TUBULOINTERSTITIAL NEPHRITIS
     Dosage: UNKNOWN
  6. PREDNISONE. [Suspect]
     Active Substance: PREDNISONE
     Dosage: UNKNOWN
     Route: 048

REACTIONS (1)
  - Steroid dependence [Recovering/Resolving]
